FAERS Safety Report 24665217 (Version 2)
Quarter: 2025Q2

REPORT INFORMATION
  Report Type: Report from Study
  Country: CA (occurrence: CA)
  Receive Date: 20241126
  Receipt Date: 20250527
  Transmission Date: 20250717
  Serious: Yes (Other)
  Sender: BIOCON
  Company Number: CA-MYLANLABS-2023M1118277

PATIENT

DRUGS (1)
  1. HULIO [Suspect]
     Active Substance: ADALIMUMAB-FKJP
     Indication: Rheumatoid arthritis
     Route: 058
     Dates: start: 20231106

REACTIONS (8)
  - Haemorrhoids [Unknown]
  - Inflammation [Unknown]
  - Pain in extremity [Unknown]
  - Product storage error [Unknown]
  - Wrong technique in product usage process [Unknown]
  - Incorrect dose administered [Unknown]
  - Inappropriate schedule of product administration [Unknown]
  - Drug ineffective [Unknown]

NARRATIVE: CASE EVENT DATE: 20231106
